FAERS Safety Report 5066230-3 (Version None)
Quarter: 2006Q3

REPORT INFORMATION
  Report Type: 
  Country: None (occurrence: None)
  Receive Date: 20060801
  Receipt Date: 20060502
  Transmission Date: 20061208
  Serious: Yes (Other)
  Sender: FDA-Public Use
  Company Number: PHNU2006DE01836

PATIENT
  Sex: Male

DRUGS (1)
  1. TEGRETOL [Suspect]
     Indication: GRAND MAL CONVULSION
     Dosage: 600-0-600 MG/DAY
     Route: 048

REACTIONS (5)
  - AZOOSPERMIA [None]
  - INFERTILITY MALE [None]
  - MEMORY IMPAIRMENT [None]
  - MOBILITY DECREASED [None]
  - PETIT MAL EPILEPSY [None]
